APPROVED DRUG PRODUCT: MOMETASONE FUROATE
Active Ingredient: MOMETASONE FUROATE
Strength: 0.1%
Dosage Form/Route: OINTMENT;TOPICAL
Application: A076481 | Product #001
Applicant: ENCUBE ETHICALS PRIVATE LTD
Approved: Nov 14, 2003 | RLD: No | RS: No | Type: DISCN